FAERS Safety Report 4836405-4 (Version None)
Quarter: 2005Q4

REPORT INFORMATION
  Report Type: 
  Country: None (occurrence: None)
  Receive Date: 20051121
  Receipt Date: 20051121
  Transmission Date: 20060501
  Serious: Yes (Life-Threatening, Hospitalization)
  Sender: FDA-Public Use
  Company Number: None

PATIENT
  Age: 17 Year
  Sex: Female
  Weight: 60.1 kg

DRUGS (2)
  1. ISOTRETINOIN [Suspect]
     Indication: ACNE
     Dosage: PO
     Route: 048
     Dates: start: 20050401, end: 20051103
  2. LORTAB [Concomitant]

REACTIONS (6)
  - DEPRESSION [None]
  - FAMILY STRESS [None]
  - LOSS OF CONSCIOUSNESS [None]
  - OVERDOSE [None]
  - STRESS [None]
  - SUICIDAL IDEATION [None]
